FAERS Safety Report 6407941-4 (Version None)
Quarter: 2009Q4

REPORT INFORMATION
  Report Type: 
  Country: None (occurrence: None)
  Receive Date: 20091008
  Receipt Date: 20090923
  Transmission Date: 20100525
  Serious: Yes (Other)
  Sender: FDA-Public Use
  Company Number: B0595915A

PATIENT
  Age: 51 Year
  Sex: Female

DRUGS (7)
  1. DICLOFENAC (FORMULATION UNKNOWN) (GENERIC) (DICLOFENAC) [Suspect]
     Indication: PAIN IN EXTREMITY
  2. LAMIVUDINE [Suspect]
     Indication: HIV INFECTION
  3. TENOFOVIR DISOPROXIL FUMARATE [Suspect]
     Indication: HIV INFECTION
  4. RITONAVIR [Suspect]
     Indication: HIV INFECTION
  5. ATAZANAVIR SULFATE [Suspect]
     Indication: HIV INFECTION
  6. KETOPROFEN [Suspect]
     Indication: PAIN IN EXTREMITY
  7. MORPHINE [Concomitant]

REACTIONS (13)
  - BLOOD PARATHYROID HORMONE DECREASED [None]
  - BONE METABOLISM DISORDER [None]
  - GAIT DISTURBANCE [None]
  - GLYCOSURIA [None]
  - HYPOPHOSPHATAEMIA [None]
  - NEPHROPATHY TOXIC [None]
  - PAIN IN EXTREMITY [None]
  - PROTEINURIA [None]
  - RENAL FAILURE [None]
  - RENAL TUBULAR DISORDER [None]
  - URINE CALCIUM INCREASED [None]
  - URINE PHOSPHATE INCREASED [None]
  - VITAMIN D DECREASED [None]
